FAERS Safety Report 25734406 (Version 1)
Quarter: 2025Q3

REPORT INFORMATION
  Report Type: Spontaneous
  Country: CA (occurrence: CA)
  Receive Date: 20250828
  Receipt Date: 20250828
  Transmission Date: 20251020
  Serious: Yes (Other)
  Sender: STRIDES
  Company Number: CA-STRIDES ARCOLAB LIMITED-2025SP010967

PATIENT
  Age: 3 Decade
  Sex: Male

DRUGS (9)
  1. OLANZAPINE [Interacting]
     Active Substance: OLANZAPINE
     Indication: Schizophrenia
     Route: 065
  2. TRAZODONE [Suspect]
     Active Substance: TRAZODONE HYDROCHLORIDE
     Indication: Schizophrenia
     Route: 065
  3. MELATONIN [Suspect]
     Active Substance: MELATONIN
     Indication: Schizophrenia
     Route: 065
  4. CLOZAPINE [Interacting]
     Active Substance: CLOZAPINE
     Indication: Schizophrenia
     Route: 065
  5. CLOZAPINE [Interacting]
     Active Substance: CLOZAPINE
     Route: 065
  6. CLOZAPINE [Interacting]
     Active Substance: CLOZAPINE
     Route: 065
  7. ARIPIPRAZOLE [Concomitant]
     Active Substance: ARIPIPRAZOLE
     Indication: Schizophrenia
     Route: 065
  8. CARIPRAZINE [Concomitant]
     Active Substance: CARIPRAZINE
     Indication: Schizophrenia
     Route: 065
  9. ZUCLOPENTHIXOL [Concomitant]
     Active Substance: ZUCLOPENTHIXOL
     Indication: Schizophrenia
     Route: 065

REACTIONS (3)
  - Myocarditis [Recovered/Resolved]
  - Drug interaction [Unknown]
  - Off label use [Unknown]
